FAERS Safety Report 6570454-3 (Version None)
Quarter: 2010Q1

REPORT INFORMATION
  Report Type: 
  Country: None (occurrence: None)
  Receive Date: 20100204
  Receipt Date: 20090702
  Transmission Date: 20100710
  Serious: No
  Sender: FDA-Public Use
  Company Number: A0795243A

PATIENT
  Age: 48 Year
  Sex: Female

DRUGS (1)
  1. ARIXTRA [Suspect]
     Route: 058
     Dates: start: 20090701

REACTIONS (2)
  - HEADACHE [None]
  - INJURY ASSOCIATED WITH DEVICE [None]
